FAERS Safety Report 12352725 (Version 5)
Quarter: 2017Q4

REPORT INFORMATION
  Report Type: Report from Study
  Country: US (occurrence: US)
  Receive Date: 20160510
  Receipt Date: 20171213
  Transmission Date: 20180320
  Serious: Yes (Disabling, Other)
  Sender: FDA-Public Use
  Company Number: US-SA-2016SA086431

PATIENT
  Age: 58 Year
  Sex: Male

DRUGS (8)
  1. SOLOSTAR [Suspect]
     Active Substance: DEVICE
     Indication: TYPE 2 DIABETES MELLITUS
     Dosage: TREATMENT START DATE: 6-9 YEARS
  2. LANTUS SOLOSTAR [Suspect]
     Active Substance: INSULIN GLARGINE
     Indication: TYPE 2 DIABETES MELLITUS
     Dosage: TREATMENT START DATE: 6-9 YEARS DOSE:26 UNIT(S)
     Route: 051
  3. LANTUS SOLOSTAR [Suspect]
     Active Substance: INSULIN GLARGINE
     Indication: TYPE 2 DIABETES MELLITUS
     Dosage: TREATMENT START DATE: 6-9 YEARS DOSE:26 UNIT(S)
     Route: 051
  4. SOLOSTAR [Suspect]
     Active Substance: DEVICE
     Indication: TYPE 2 DIABETES MELLITUS
     Dosage: TREATMENT START DATE: 6-9 YEARS
  5. LANTUS SOLOSTAR [Suspect]
     Active Substance: INSULIN GLARGINE
     Indication: TYPE 2 DIABETES MELLITUS
     Dosage: TREATMENT START DATE: 6-9 YEARS DOSE:26 UNIT(S)
     Route: 051
  6. SOLOSTAR [Suspect]
     Active Substance: DEVICE
     Indication: TYPE 2 DIABETES MELLITUS
     Dosage: TREATMENT START DATE: 6-9 YEARS
  7. SOLOSTAR [Suspect]
     Active Substance: DEVICE
     Indication: TYPE 2 DIABETES MELLITUS
     Dosage: TREATMENT START DATE: 6-9 YEARS
  8. LANTUS SOLOSTAR [Suspect]
     Active Substance: INSULIN GLARGINE
     Indication: TYPE 2 DIABETES MELLITUS
     Dosage: TREATMENT START DATE: 6-9 YEARS DOSE:26 UNIT(S)
     Route: 051

REACTIONS (13)
  - Wound infection [Unknown]
  - Staphylococcal infection [Unknown]
  - Gait disturbance [Unknown]
  - Oedema peripheral [Not Recovered/Not Resolved]
  - Blood glucose increased [Unknown]
  - Osteomyelitis [Unknown]
  - Fatigue [Unknown]
  - Device issue [Unknown]
  - Glycosylated haemoglobin increased [Unknown]
  - Product storage error [Unknown]
  - Wound [Unknown]
  - Off label use [Unknown]
  - Wrong technique in product usage process [Unknown]
